FAERS Safety Report 7093705-8 (Version None)
Quarter: 2010Q4

REPORT INFORMATION
  Report Type: 
  Country: None (occurrence: None)
  Receive Date: 20101110
  Receipt Date: 20101104
  Transmission Date: 20110411
  Serious: Yes (Hospitalization)
  Sender: FDA-Public Use
  Company Number: US-ROCHE-739666

PATIENT
  Age: 40 Year
  Sex: Male

DRUGS (1)
  1. CELLCEPT [Suspect]
     Route: 048

REACTIONS (1)
  - ABDOMINAL HERNIA OBSTRUCTIVE [None]
